FAERS Safety Report 9185379 (Version 1)
Quarter: 2013Q1

REPORT INFORMATION
  Report Type: Spontaneous
  Country: US (occurrence: US)
  Receive Date: 20130325
  Receipt Date: 20130325
  Transmission Date: 20140127
  Serious: No
  Sender: FDA-Public Use
  Company Number: US-BIOGENIDEC-2013BI025035

PATIENT
  Sex: Female

DRUGS (1)
  1. TYSABRI [Suspect]
     Indication: MULTIPLE SCLEROSIS
     Route: 042
     Dates: start: 20130306

REACTIONS (9)
  - Confusional state [Unknown]
  - Memory impairment [Unknown]
  - Pain [Unknown]
  - Neuropathy peripheral [Unknown]
  - Agraphia [Unknown]
  - Muscle disorder [Unknown]
  - Muscular weakness [Unknown]
  - Fall [Recovered/Resolved]
  - Fatigue [Unknown]
